FAERS Safety Report 5607085-5 (Version None)
Quarter: 2008Q1

REPORT INFORMATION
  Report Type: 
  Country: None (occurrence: None)
  Receive Date: 20080129
  Receipt Date: 20080117
  Transmission Date: 20080703
  Serious: Yes (Hospitalization)
  Sender: FDA-Public Use
  Company Number: PFIZER INC-2008005108

PATIENT
  Sex: Male
  Weight: 54.5 kg

DRUGS (1)
  1. SUTENT [Suspect]
     Indication: MALIGNANT FIBROUS HISTIOCYTOMA
     Route: 048

REACTIONS (1)
  - GASTROENTERITIS [None]
